FAERS Safety Report 9476653 (Version 2)
Quarter: 2013Q3

REPORT INFORMATION
  Report Type: Spontaneous
  Country: US (occurrence: US)
  Receive Date: 20130826
  Receipt Date: 20130826
  Transmission Date: 20140515
  Serious: No
  Sender: FDA-Public Use
  Company Number: US-BRISTOL-MYERS SQUIBB COMPANY-18594499

PATIENT
  Age: 36 Year
  Sex: Female
  Weight: 54.42 kg

DRUGS (5)
  1. KENALOG INJ [Suspect]
     Indication: PAIN
     Dosage: 2ND DOSE- 28FEB2013.
     Dates: start: 20121030
  2. KENALOG INJ [Suspect]
     Indication: MUSCULOSKELETAL STIFFNESS
     Dosage: 2ND DOSE- 28FEB2013.
     Dates: start: 20121030
  3. KENALOG INJ [Suspect]
     Indication: ROTATOR CUFF SYNDROME
     Dosage: 2ND DOSE- 28FEB2013.
     Dates: start: 20121030
  4. CYMBALTA [Concomitant]
  5. ATIVAN [Concomitant]

REACTIONS (7)
  - Menstruation irregular [Unknown]
  - Anxiety [Unknown]
  - Panic attack [Unknown]
  - Muscular weakness [Unknown]
  - Pollakiuria [Unknown]
  - Insomnia [Unknown]
  - Flushing [Recovered/Resolved]
